FAERS Safety Report 7486932-9 (Version None)
Quarter: 2011Q2

REPORT INFORMATION
  Report Type: 
  Country: None (occurrence: None)
  Receive Date: 20110517
  Receipt Date: 20100728
  Transmission Date: 20111010
  Serious: No
  Sender: FDA-Public Use
  Company Number: US-AMGEN-TCS420934

PATIENT
  Age: 56 Year
  Sex: Female

DRUGS (1)
  1. ENBREL [Suspect]
     Indication: PSORIASIS
     Dosage: 50 MG, 2 TIMES/WK
     Route: 058
     Dates: start: 20090729, end: 20090901

REACTIONS (5)
  - HYPOAESTHESIA [None]
  - ARTHRITIS [None]
  - MUSCULAR WEAKNESS [None]
  - TENDONITIS [None]
  - FATIGUE [None]
